FAERS Safety Report 4411300-3 (Version None)
Quarter: 2004Q2

REPORT INFORMATION
  Report Type: 
  Country: None (occurrence: None)
  Receive Date: 20040630
  Receipt Date: 20040503
  Transmission Date: 20050107
  Serious: No
  Sender: FDA-Public Use
  Company Number: 04P-163-0259443-00

PATIENT
  Sex: Female
  Weight: 90.7194 kg

DRUGS (11)
  1. HUMIRA 40 MG/0.8 ML PRE-FILLED SYRINGE (HUMIRA) (ADALIMUMB) [Suspect]
     Indication: RHEUMATOID ARTHRITIS
     Dosage: 40 MG, 1 IN 2 WK, SUBCUTANEOUS
     Route: 058
     Dates: start: 20040101, end: 20040423
  2. PREDNISONE [Concomitant]
  3. PHENERGAN HCL [Concomitant]
  4. VICODIN [Concomitant]
  5. ASPIRIN [Concomitant]
  6. OMEPRAZOLE [Concomitant]
  7. CLONAZEPAM [Concomitant]
  8. CETIRIZINE HCL [Concomitant]
  9. LEXAPRO [Concomitant]
  10. LISINOPRIL [Concomitant]
  11. ACETAMINOPHEN [Concomitant]

REACTIONS (5)
  - INJECTION SITE ERYTHEMA [None]
  - INJECTION SITE HAEMORRHAGE [None]
  - INJECTION SITE NODULE [None]
  - INJECTION SITE PRURITUS [None]
  - SINUSITIS [None]
